FAERS Safety Report 19828253 (Version 1)
Quarter: 2021Q3

REPORT INFORMATION
  Report Type: Spontaneous
  Country: DE (occurrence: DE)
  Receive Date: 20210914
  Receipt Date: 20210914
  Transmission Date: 20211014
  Serious: Yes (Other)
  Sender: FDA-Public Use
  Company Number: DE-TORRENT-00021107

PATIENT
  Age: 41 Year
  Sex: Female
  Weight: 90 kg

DRUGS (2)
  1. DULOXALTA [Suspect]
     Active Substance: DULOXETINE HYDROCHLORIDE
     Indication: DEPRESSION
     Dosage: 120 (MG/D ( 90))
     Route: 048
     Dates: start: 20200606, end: 20210307
  2. QUETIAPINE. [Suspect]
     Active Substance: QUETIAPINE
     Indication: DEPRESSION
     Dosage: 200 [MG/D ]
     Route: 048
     Dates: start: 20200724, end: 20210307

REACTIONS (2)
  - Gestational diabetes [Recovered/Resolved]
  - Exposure during pregnancy [Unknown]
